FAERS Safety Report 16797923 (Version 1)
Quarter: 2019Q3

REPORT INFORMATION
  Report Type: Spontaneous
  Country: US (occurrence: US)
  Receive Date: 20190912
  Receipt Date: 20190912
  Transmission Date: 20191005
  Serious: Yes (Hospitalization)
  Sender: FDA-Public Use
  Company Number: US-LUPIN PHARMACEUTICALS INC.-2019-05803

PATIENT
  Age: 64 Year
  Sex: Male

DRUGS (16)
  1. ASPIRIN. [Concomitant]
     Active Substance: ASPIRIN
     Indication: PERCUTANEOUS CORONARY INTERVENTION
  2. CLOPIDOGREL [Concomitant]
     Active Substance: CLOPIDOGREL BISULFATE
     Indication: CORONARY ARTERY DISEASE
     Dosage: 75 MILLIGRAM, QD
     Route: 048
  3. CLOPIDOGREL [Concomitant]
     Active Substance: CLOPIDOGREL BISULFATE
     Indication: PERCUTANEOUS CORONARY INTERVENTION
  4. ATORVASTATIN [Concomitant]
     Active Substance: ATORVASTATIN
     Indication: HYPERLIPIDAEMIA
     Dosage: 40 MILLIGRAM, QD
     Route: 065
  5. TIOTROPIUM [Concomitant]
     Active Substance: TIOTROPIUM
     Indication: CHRONIC OBSTRUCTIVE PULMONARY DISEASE
     Dosage: 18 MICROGRAM, QD EVERY MORNING
  6. ONDANSETRON [Concomitant]
     Active Substance: ONDANSETRON
     Indication: VOMITING
  7. RANOLAZINE (RANOLAZINE) [Interacting]
     Active Substance: RANOLAZINE
     Indication: PERCUTANEOUS CORONARY INTERVENTION
  8. CILOSTAZOL. [Concomitant]
     Active Substance: CILOSTAZOL
     Indication: CORONARY ARTERY DISEASE
     Dosage: 50 MILLIGRAM, QD
     Route: 048
  9. ASPIRIN. [Concomitant]
     Active Substance: ASPIRIN
     Indication: CORONARY ARTERY DISEASE
     Dosage: 81 MILLIGRAM, QD
     Route: 048
  10. CILOSTAZOL. [Concomitant]
     Active Substance: CILOSTAZOL
     Indication: PERCUTANEOUS CORONARY INTERVENTION
  11. EMTRICITABINE/TENOFOVIR DISOPROXIL [Concomitant]
     Active Substance: EMTRICITABINE\TENOFOVIR DISOPROXIL
     Indication: HIV INFECTION
     Dosage: EMTRICITABINE 200 MG?TENOFOVIR 25 MG, QD
     Route: 048
  12. PANTOPRAZOLE [Concomitant]
     Active Substance: PANTOPRAZOLE
     Indication: DYSPEPSIA
     Dosage: 40 MILLIGRAM, QD,  DURATION LESS THAN 2 MONTHS
     Route: 048
  13. RANOLAZINE (RANOLAZINE) [Suspect]
     Active Substance: RANOLAZINE
     Indication: CORONARY ARTERY DISEASE
     Dosage: DURATION: APPROXIMATELY 2 MONTHS
     Route: 065
  14. PREZCOBIX [Interacting]
     Active Substance: COBICISTAT\DARUNAVIR ETHANOLATE
     Indication: HIV INFECTION
     Dosage: DARUNAVIR 800 MG?COBICISTAT 150 MG DAILY
     Route: 048
  15. ONDANSETRON [Concomitant]
     Active Substance: ONDANSETRON
     Indication: NAUSEA
     Dosage: 8 MG, BID EVERY 12 HOUR AS NEEDED, DURATION LESS THAN 2 MONTHS
     Route: 048
  16. TRAMADOL. [Concomitant]
     Active Substance: TRAMADOL
     Indication: PAIN
     Dosage: 50 MILLIGRAM, QD AS NEEDED
     Route: 065

REACTIONS (11)
  - Decreased appetite [Recovered/Resolved]
  - Presyncope [Recovered/Resolved]
  - Drug interaction [Recovered/Resolved]
  - Contraindicated product administered [Unknown]
  - Nausea [Recovered/Resolved]
  - Vomiting [Recovered/Resolved]
  - Dyspepsia [Recovered/Resolved]
  - Weight decreased [Recovering/Resolving]
  - Dizziness [Recovered/Resolved]
  - Chest pain [Recovered/Resolved]
  - Atrioventricular block first degree [Recovered/Resolved]
